FAERS Safety Report 4646407-9 (Version None)
Quarter: 2005Q2

REPORT INFORMATION
  Report Type: 
  Country: None (occurrence: None)
  Receive Date: 20050427
  Receipt Date: 20040927
  Transmission Date: 20051028
  Serious: No
  Sender: FDA-Public Use
  Company Number: US-GLAXOSMITHKLINE-A0527394A

PATIENT
  Age: 35 Year
  Sex: Female
  Weight: 79.5 kg

DRUGS (3)
  1. SEREVENT [Suspect]
     Indication: ASTHMA
     Dosage: 50MCG TWICE PER DAY
     Route: 055
     Dates: start: 20020101
  2. FLOVENT [Suspect]
     Indication: ASTHMA
     Dosage: 330MCG PER DAY
     Route: 055
  3. ALBUTEROL [Concomitant]

REACTIONS (2)
  - DRUG EXPOSURE DURING PREGNANCY [None]
  - PALPITATIONS [None]
